FAERS Safety Report 17001745 (Version 2)
Quarter: 2019Q4

REPORT INFORMATION
  Report Type: Spontaneous
  Country: CN (occurrence: CN)
  Receive Date: 20191106
  Receipt Date: 20191111
  Transmission Date: 20200122
  Serious: Yes (Hospitalization, Other)
  Sender: FDA-Public Use
  Company Number: NVSC2019CN023799

PATIENT
  Age: 81 Year
  Sex: Female

DRUGS (5)
  1. METFORMIN [Suspect]
     Active Substance: METFORMIN HYDROCHLORIDE
     Indication: BLOOD GLUCOSE INCREASED
     Dosage: 850 MG, BID
     Route: 048
     Dates: start: 20190804
  2. INSULIN ASPART [Concomitant]
     Active Substance: INSULIN ASPART
     Dosage: 30 IU, BID
     Route: 065
  3. GALVUS [Suspect]
     Active Substance: VILDAGLIPTIN
     Indication: PRODUCT USED FOR UNKNOWN INDICATION
     Dosage: 50 MG, BID
     Route: 048
     Dates: start: 20190804
  4. INSULIN ASPART [Concomitant]
     Active Substance: INSULIN ASPART
     Indication: BLOOD GLUCOSE INCREASED
     Dosage: 16 IU, BID
     Route: 058
  5. ACARBOSE. [Concomitant]
     Active Substance: ACARBOSE
     Indication: BLOOD GLUCOSE INCREASED
     Dosage: 100 MG, TID
     Route: 065

REACTIONS (7)
  - Hypoaesthesia [Unknown]
  - Limb discomfort [Unknown]
  - Dizziness [Unknown]
  - Off label use [Unknown]
  - Dementia Alzheimer^s type [Unknown]
  - Hypertension [Unknown]
  - Type 2 diabetes mellitus [Unknown]
